FAERS Safety Report 25024515 (Version 1)
Quarter: 2025Q1

REPORT INFORMATION
  Report Type: Spontaneous
  Country: CN (occurrence: CN)
  Receive Date: 20250228
  Receipt Date: 20250228
  Transmission Date: 20250409
  Serious: Yes (Other)
  Sender: PFIZER
  Company Number: CN-PFIZER INC-PV202500023979

PATIENT
  Age: 51 Year
  Sex: Male

DRUGS (2)
  1. CYTARABINE [Suspect]
     Active Substance: CYTARABINE
     Indication: Acute promyelocytic leukaemia
     Dosage: 180 MG, 1X/DAY
     Route: 041
     Dates: start: 20250205, end: 20250211
  2. DAUNORUBICIN HYDROCHLORIDE [Suspect]
     Active Substance: DAUNORUBICIN HYDROCHLORIDE
     Indication: Acute promyelocytic leukaemia
     Dosage: 80 MG, 1X/DAY
     Route: 041
     Dates: start: 20250205, end: 20250207

REACTIONS (3)
  - Nausea [Unknown]
  - Hiccups [Unknown]
  - Gastrointestinal disorder [Unknown]

NARRATIVE: CASE EVENT DATE: 20250207
